FAERS Safety Report 4494387-1 (Version None)
Quarter: 2004Q4

REPORT INFORMATION
  Report Type: 
  Country: None (occurrence: None)
  Receive Date: 20041104
  Receipt Date: 20041104
  Transmission Date: 20050328
  Serious: Yes (Life-Threatening, Hospitalization)
  Sender: FDA-Public Use
  Company Number: None

PATIENT
  Age: 68 Year

DRUGS (1)
  1. VIOXX [Suspect]
     Dosage: ONCE A DAY AS NEEDED

REACTIONS (3)
  - ARTHRALGIA [None]
  - CHEST PAIN [None]
  - MYOCARDIAL INFARCTION [None]
